FAERS Safety Report 23086956 (Version 2)
Quarter: 2023Q4

REPORT INFORMATION
  Report Type: Spontaneous
  Country: US (occurrence: US)
  Receive Date: 20231020
  Receipt Date: 20231123
  Transmission Date: 20240110
  Serious: No
  Sender: FDA-Public Use
  Company Number: US-SA-SAC20231013000156

PATIENT
  Age: 71 Year
  Sex: Male
  Weight: 140.6 kg

DRUGS (1)
  1. DUPIXENT [Suspect]
     Active Substance: DUPILUMAB
     Indication: Asthma
     Dosage: 300 MG, QOW
     Route: 058
     Dates: start: 2023, end: 202307

REACTIONS (6)
  - Hordeolum [Recovered/Resolved]
  - Ocular hyperaemia [Recovered/Resolved]
  - Eye swelling [Recovered/Resolved]
  - Eye irritation [Recovered/Resolved]
  - Conjunctivitis [Unknown]
  - Rash [Unknown]

NARRATIVE: CASE EVENT DATE: 20230101
